FAERS Safety Report 21047165 (Version 1)
Quarter: 2022Q3

REPORT INFORMATION
  Report Type: Spontaneous
  Country: US (occurrence: US)
  Receive Date: 20220706
  Receipt Date: 20220706
  Transmission Date: 20221026
  Serious: Yes (Life-Threatening)
  Sender: FDA-Public Use
  Company Number: US-Accord-264130

PATIENT

DRUGS (1)
  1. ATROPINE SULFATE [Suspect]
     Active Substance: ATROPINE SULFATE
     Indication: Bradycardia
     Dosage: STRENGTH: 1 MG/ML?ONCE DAILY
     Route: 042
     Dates: start: 20220517, end: 20220517

REACTIONS (2)
  - Syringe issue [Unknown]
  - Inappropriate schedule of product administration [Unknown]
